FAERS Safety Report 15968164 (Version 2)
Quarter: 2021Q1

REPORT INFORMATION
  Report Type: Report from Study
  Country: US (occurrence: US)
  Receive Date: 20190215
  Receipt Date: 20210113
  Transmission Date: 20210419
  Serious: Yes (Death, Hospitalization)
  Sender: FDA-Public Use
  Company Number: US-VIFOR (INTERNATIONAL) INC.-VIT-2019-01212

PATIENT
  Age: 77 Year
  Sex: Male

DRUGS (15)
  1. ASPIRIN. [Concomitant]
     Active Substance: ASPIRIN
  2. MOMETASONE [Concomitant]
     Active Substance: MOMETASONE
  3. LEVOTHYROXIN [Concomitant]
     Active Substance: LEVOTHYROXINE
  4. PAROXETINE. [Concomitant]
     Active Substance: PAROXETINE
  5. TAMSULOSIN [Concomitant]
     Active Substance: TAMSULOSIN
  6. PANTOPRAZOLE [Concomitant]
     Active Substance: PANTOPRAZOLE
  7. VELTASSA [Suspect]
     Active Substance: PATIROMER
     Indication: HYPERKALAEMIA
     Route: 048
     Dates: start: 20181130, end: 201901
  8. VELTASSA [Suspect]
     Active Substance: PATIROMER
     Route: 048
  9. ALLOPURINOL. [Concomitant]
     Active Substance: ALLOPURINOL
  10. ATORVASTATIN [Concomitant]
     Active Substance: ATORVASTATIN
  11. ESCITALOPRAM [Concomitant]
     Active Substance: ESCITALOPRAM OXALATE
  12. METOPROLOL. [Concomitant]
     Active Substance: METOPROLOL
  13. FUROSEMIDE. [Concomitant]
     Active Substance: FUROSEMIDE
  14. TRETINOIN. [Concomitant]
     Active Substance: TRETINOIN
  15. ULORIC [Concomitant]
     Active Substance: FEBUXOSTAT

REACTIONS (3)
  - Death [Fatal]
  - Off label use [Unknown]
  - Parkinson^s disease [Not Recovered/Not Resolved]

NARRATIVE: CASE EVENT DATE: 20190106
